FAERS Safety Report 10376174 (Version 1)
Quarter: 2014Q3

REPORT INFORMATION
  Report Type: Spontaneous
  Country: US (occurrence: US)
  Receive Date: 20140811
  Receipt Date: 20140811
  Transmission Date: 20150326
  Serious: No
  Sender: FDA-Public Use
  Company Number: US-ASTRAZENECA-2013SE84086

PATIENT
  Age: 77 Year
  Sex: Female
  Weight: 77.1 kg

DRUGS (8)
  1. LISINOPRIL. [Suspect]
     Active Substance: LISINOPRIL
     Indication: BLOOD PRESSURE
     Route: 048
  2. ARIMIDEX [Suspect]
     Active Substance: ANASTROZOLE
     Indication: BREAST CANCER
     Route: 048
  3. GABAPENTIN. [Concomitant]
     Active Substance: GABAPENTIN
     Indication: PAIN
  4. MUSCLE RELAXER [Concomitant]
     Active Substance: UNSPECIFIED INGREDIENT
     Indication: MUSCLE RELAXANT THERAPY
  5. GLYBURIDE. [Concomitant]
     Active Substance: GLYBURIDE
     Indication: DIABETES MELLITUS
  6. LEVOTHYROXINE [Concomitant]
     Active Substance: LEVOTHYROXINE
  7. HYDROCODONE [Concomitant]
     Active Substance: HYDROCODONE
     Indication: PAIN
  8. WARFARIN [Concomitant]
     Active Substance: WARFARIN

REACTIONS (3)
  - Abdominal discomfort [Unknown]
  - Body height decreased [Unknown]
  - Drug dose omission [Unknown]
